FAERS Safety Report 8540027-1 (Version None)
Quarter: 2012Q3

REPORT INFORMATION
  Report Type: 
  Country: None (occurrence: None)
  Receive Date: 20120713
  Receipt Date: 20120627
  Transmission Date: 20120928
  Serious: Yes (Life-Threatening)
  Sender: FDA-Public Use
  Company Number: 1333914

PATIENT
  Age: 55 Year
  Sex: Female

DRUGS (1)
  1. OXALIPLATIN [Suspect]
     Indication: PRODUCT USED FOR UNKNOWN INDICATION
     Dosage: 150 MG, INTRAVENOUS
     Route: 042
     Dates: start: 20120625, end: 20120625

REACTIONS (2)
  - ERYTHEMA [None]
  - LARYNGOSPASM [None]
